FAERS Safety Report 11285749 (Version 1)
Quarter: 2015Q3

REPORT INFORMATION
  Report Type: Spontaneous
  Country: US (occurrence: US)
  Receive Date: 20150721
  Receipt Date: 20150721
  Transmission Date: 20151125
  Serious: Yes (Other)
  Sender: FDA-Public Use
  Company Number: US-AMGEN-USASP2015071316

PATIENT
  Age: 45 Year
  Sex: Female

DRUGS (1)
  1. ENBREL [Suspect]
     Active Substance: ETANERCEPT
     Indication: PRODUCT USED FOR UNKNOWN INDICATION
     Dosage: 50 MG, QWK
     Route: 058
     Dates: end: 201507

REACTIONS (6)
  - Infection susceptibility increased [Unknown]
  - Hypoaesthesia [Unknown]
  - Drug effect decreased [Unknown]
  - Helicobacter gastritis [Unknown]
  - Psoriasis [Unknown]
  - Paraesthesia [Unknown]

NARRATIVE: CASE EVENT DATE: 2015
